FAERS Safety Report 5372941-2 (Version None)
Quarter: 2007Q2

REPORT INFORMATION
  Report Type: 
  Country: None (occurrence: None)
  Receive Date: 20070626
  Receipt Date: 20070611
  Transmission Date: 20071010
  Serious: Yes (Death, Life-Threatening)
  Sender: FDA-Public Use
  Company Number: S07-FRA-02631-01

PATIENT
  Age: 94 Year
  Sex: Male

DRUGS (6)
  1. CITALOPRAM HYDROBROMIDE [Suspect]
     Indication: SENILE DEMENTIA
     Dosage: 5 QD PO
     Route: 048
  2. ASPIRIN [Suspect]
     Indication: MYOCARDIAL ISCHAEMIA
     Dosage: 1 QD PO
     Route: 048
  3. NOOTROPYL (PIRACETAM) [Concomitant]
  4. MODOPAR [Concomitant]
  5. IKOREL (NICORANDIL) [Concomitant]
  6. OMIX (TAMSULOSIN HYDROCHLORIDE) [Concomitant]

REACTIONS (8)
  - ALTERED STATE OF CONSCIOUSNESS [None]
  - CARDIAC MURMUR [None]
  - FALL [None]
  - HEAD INJURY [None]
  - MUSCULOSKELETAL STIFFNESS [None]
  - PNEUMONIA ASPIRATION [None]
  - SUBARACHNOID HAEMORRHAGE [None]
  - WHEEZING [None]
